FAERS Safety Report 16856208 (Version 2)
Quarter: 2019Q3

REPORT INFORMATION
  Report Type: Report from Study
  Country: IT (occurrence: IT)
  Receive Date: 20190926
  Receipt Date: 20190927
  Transmission Date: 20191005
  Serious: Yes (Other)
  Sender: FDA-Public Use
  Company Number: IT-TEVA-2019-IT-1112644

PATIENT
  Age: 23 Year
  Sex: Female

DRUGS (6)
  1. CLOZAPINE. [Suspect]
     Active Substance: CLOZAPINE
     Indication: SCHIZOPHRENIA
     Route: 048
     Dates: start: 20190710
  2. NOAN COMPRESSE RIVESTITE [Suspect]
     Active Substance: DIAZEPAM
     Indication: SOMATIC SYMPTOM DISORDER
     Route: 048
     Dates: start: 20190710
  3. CLOPIXOL 10 MG COMPRESSE RIVESTITE CON FILM [Suspect]
     Active Substance: ZUCLOPENTHIXOL
     Indication: SCHIZOPHRENIA
     Route: 048
     Dates: start: 20190710
  4. VALDORM 30 MG CAPSULE [Suspect]
     Active Substance: FLURAZEPAM HYDROCHLORIDE
     Indication: SLEEP DISORDER DUE TO GENERAL MEDICAL CONDITION, INSOMNIA TYPE
     Route: 048
     Dates: start: 20190710
  5. BISOPROLOL FUMARATE. [Concomitant]
     Active Substance: BISOPROLOL FUMARATE
     Route: 048
     Dates: start: 20190710
  6. CLOPIXOL 200 MG/ML SOLUZIONE INIETTABILE A RILASCIO PROLUNGATO PER USO [Suspect]
     Active Substance: ZUCLOPENTHIXOL
     Indication: SCHIZOPHRENIA
     Route: 030
     Dates: start: 20190710

REACTIONS (3)
  - Presyncope [Recovered/Resolved]
  - Visual impairment [Recovered/Resolved]
  - Drug interaction [Recovered/Resolved]

NARRATIVE: CASE EVENT DATE: 20190809
